FAERS Safety Report 7763058-8 (Version None)
Quarter: 2011Q3

REPORT INFORMATION
  Report Type: 
  Country: None (occurrence: None)
  Receive Date: 20110920
  Receipt Date: 20110118
  Transmission Date: 20111222
  Serious: No
  Sender: FDA-Public Use
  Company Number: US-BAYER-2011-007816

PATIENT
  Age: 40 Year
  Sex: Male
  Weight: 87.982 kg

DRUGS (2)
  1. ULTRAVIST 150 [Suspect]
     Indication: COMPUTERISED TOMOGRAM
     Dosage: 120 ML, ONCE, 4 ML/SEC
     Route: 042
     Dates: start: 20110118, end: 20110118
  2. MULTI-VITAMIN [Concomitant]

REACTIONS (2)
  - URTICARIA [None]
  - PRURITUS GENERALISED [None]
